FAERS Safety Report 16452542 (Version 2)
Quarter: 2019Q3

REPORT INFORMATION
  Report Type: Spontaneous
  Country: US (occurrence: US)
  Receive Date: 20190619
  Receipt Date: 20190710
  Transmission Date: 20191004
  Serious: Yes (Disabling, Other)
  Sender: FDA-Public Use
  Company Number: US-BAYER-2019-111859

PATIENT
  Age: 75 Year
  Sex: Female

DRUGS (6)
  1. BAYER LOW DOSE [Suspect]
     Active Substance: ASPIRIN
  2. ALEVE [Suspect]
     Active Substance: NAPROXEN SODIUM
     Indication: MUSCULOSKELETAL DISCOMFORT
     Dosage: 1 DF, BID WITH MEALS
     Route: 048
     Dates: start: 20190201, end: 20190211
  3. TETRACYCLINE [Suspect]
     Active Substance: TETRACYCLINE
  4. SULFA PLUS [Suspect]
     Active Substance: CLIOQUINOL\PAPAVERINE HYDROCHLORIDE\SULFAGUANIDINE\VITAMINS
  5. IBUPROFEN. [Suspect]
     Active Substance: IBUPROFEN
  6. ACETAMINOPHEN. [Suspect]
     Active Substance: ACETAMINOPHEN

REACTIONS (15)
  - Ear discomfort [Not Recovered/Not Resolved]
  - Gastrooesophageal reflux disease [Recovered/Resolved with Sequelae]
  - Swelling of eyelid [Recovered/Resolved with Sequelae]
  - Insomnia [Recovered/Resolved with Sequelae]
  - Erythema of eyelid [Recovered/Resolved with Sequelae]
  - Rhinorrhoea [Recovered/Resolved with Sequelae]
  - Dyspnoea [Recovered/Resolved with Sequelae]
  - Fatigue [Recovered/Resolved with Sequelae]
  - Deafness bilateral [Not Recovered/Not Resolved]
  - Nasal congestion [Recovered/Resolved with Sequelae]
  - Tinnitus [Not Recovered/Not Resolved]
  - Lacrimation increased [Recovered/Resolved with Sequelae]
  - Eyelid margin crusting [Recovered/Resolved with Sequelae]
  - Dark circles under eyes [Recovered/Resolved with Sequelae]
  - Asthenia [None]

NARRATIVE: CASE EVENT DATE: 20190201
